FAERS Safety Report 5258824-7 (Version None)
Quarter: 2007Q1

REPORT INFORMATION
  Report Type: 
  Country: None (occurrence: None)
  Receive Date: 20061117
  Receipt Date: 20060210
  Transmission Date: 20070707
  Serious: Yes (Other)
  Sender: FDA-Public Use
  Company Number: US-JNJFOC-20060202934

PATIENT
  Age: 92 Year
  Sex: Female
  Weight: 55.3388 kg

DRUGS (1)
  1. LEVAQUIN [Suspect]
     Indication: PHARYNGOLARYNGEAL PAIN
     Dosage: 500 MG, 1 IN 1 DAY, ORAL
     Route: 048
     Dates: start: 20050301, end: 20050401

REACTIONS (3)
  - BLOOD PRESSURE INCREASED [None]
  - DIZZINESS [None]
  - HEART RATE INCREASED [None]
